FAERS Safety Report 9202734 (Version 1)
Quarter: 2013Q2

REPORT INFORMATION
  Report Type: Report from Study
  Country: NL (occurrence: NL)
  Receive Date: 20130401
  Receipt Date: 20130401
  Transmission Date: 20140414
  Serious: Yes (Other)
  Sender: FDA-Public Use
  Company Number: NL-BIOMARINAP-NL-2013-100515

PATIENT
  Age: 9 Year
  Sex: Male
  Weight: 17 kg

DRUGS (5)
  1. NAGLAZYME [Suspect]
     Indication: MUCOPOLYSACCHARIDOSIS VI
     Dosage: 15 MG, QW
     Route: 041
     Dates: start: 20070320
  2. FUROSEMIDE [Concomitant]
     Indication: CARDIAC DISORDER
     Dosage: 10 MG, UNK
     Route: 048
  3. SPIRONOLACTONE [Concomitant]
     Indication: CARDIAC DISORDER
     Dosage: 10 MG, QD
     Route: 048
  4. CAPTOPRIL [Concomitant]
     Indication: CARDIAC DISORDER
     Dosage: 6.25 MG, UNK
     Route: 048
  5. CARVEDILOL [Concomitant]
     Indication: CARDIAC DISORDER
     Dosage: 1.526 MG, BID
     Route: 048

REACTIONS (1)
  - Cervical spinal stenosis [Not Recovered/Not Resolved]
